FAERS Safety Report 10057890 (Version 4)
Quarter: 2015Q3

REPORT INFORMATION
  Report Type: Spontaneous
  Country: JP (occurrence: None)
  Receive Date: 20140402
  Receipt Date: 20150810
  Transmission Date: 20151125
  Serious: Yes (Other)
  Sender: FDA-Public Use
  Company Number: 2008JP004115

PATIENT
  Age: 32 Year
  Sex: Male
  Weight: 57 kg

DRUGS (16)
  1. PROGRAF [Suspect]
     Active Substance: TACROLIMUS\TACROLIMUS ANHYDROUS
     Indication: LUPUS NEPHRITIS
     Dosage: 1.5MG, ONCE DAILY, ORAL
     Route: 048
     Dates: start: 20070531, end: 20070611
  2. MEVALOTIN (PRAVASTATIN SODIUM) [Concomitant]
     Active Substance: PRAVASTATIN SODIUM
  3. PL [Concomitant]
     Active Substance: ACETAMINOPHEN\CAFFEINE\PROMETHAZINE\SALICYLAMIDE
  4. MUCOSOLVAN (AMBROXOL HYDROCHLORIDE) [Concomitant]
  5. TAMIFLU [Concomitant]
     Active Substance: OSELTAMIVIR PHOSPHATE
  6. WARFARIN (WARFARIN POTASSIUM) [Concomitant]
  7. ALFAROL [Concomitant]
     Active Substance: ALFACALCIDOL
  8. BONALON (ALENDRONATE SODIUM) [Concomitant]
  9. MICARDIS [Suspect]
     Active Substance: TELMISARTAN
     Indication: HYPERTENSION
     Route: 048
     Dates: start: 20070608, end: 20070623
  10. ZANTAC [Concomitant]
     Active Substance: RANITIDINE HYDROCHLORIDE
  11. FLOMOX (CEFCAPENE PIVOXIL HYDROCHLORIDE) [Concomitant]
  12. SAWACILLIN (AMOXICILLIN) [Concomitant]
     Active Substance: AMOXICILLIN
  13. PREDONINE [Suspect]
     Active Substance: PREDNISOLONE\PREDNISOLONE ACETATE\PREDNISOLONE SODIUM SUCCINATE
     Indication: LUPUS NEPHRITIS
     Dosage: 50MG, ONCE DAILY, ORAL
     Route: 048
     Dates: start: 20070531, end: 20070613
  14. METHYCOBAL (MECOBALAMIN) [Concomitant]
  15. MUCODYNE (CARBOCISTEINE) [Concomitant]
     Active Substance: CARBOCYSTEINE
  16. MEDICON (DEXTROMETHORPHAN HYDROBROMIDE) [Concomitant]
     Active Substance: DEXTROMETHORPHAN HYDROBROMIDE

REACTIONS (12)
  - Oral candidiasis [None]
  - White blood cell count increased [None]
  - Intentional product use issue [None]
  - Upper respiratory tract inflammation [None]
  - Neoplasm skin [None]
  - Influenza [None]
  - Renal impairment [None]
  - Bronchitis [None]
  - Periodontal disease [None]
  - Herpes zoster [None]
  - Cytomegalovirus infection [None]
  - Blood creatinine increased [None]

NARRATIVE: CASE EVENT DATE: 20070607
